FAERS Safety Report 16594394 (Version 1)
Quarter: 2019Q3

REPORT INFORMATION
  Report Type: Other
  Country: US (occurrence: US)
  Receive Date: 20190718
  Receipt Date: 20190718
  Transmission Date: 20191004
  Serious: No
  Sender: FDA-Public Use
  Company Number: US-SWEDISH ORPHAN BIOVITRUM-2019US0110

PATIENT
  Age: 34 Year
  Sex: Female

DRUGS (13)
  1. OMEPRAZOLE DR [Concomitant]
     Active Substance: OMEPRAZOLE
  2. BIOTIN [Concomitant]
     Active Substance: BIOTIN
  3. DICLOFENAC [Concomitant]
     Active Substance: DICLOFENAC
  4. OXYCODONE [Concomitant]
     Active Substance: OXYCODONE
  5. KINERET [Suspect]
     Active Substance: ANAKINRA
     Route: 058
     Dates: start: 20181205
  6. SULFASALAZINE. [Concomitant]
     Active Substance: SULFASALAZINE
  7. CRANBERRY TABLET [Concomitant]
  8. VITAMIN D [Concomitant]
     Active Substance: VITAMIN D NOS
  9. BONIVA [Concomitant]
     Active Substance: IBANDRONATE SODIUM
  10. FERROUS SULFATE. [Concomitant]
     Active Substance: FERROUS SULFATE
  11. PREDNISONE. [Concomitant]
     Active Substance: PREDNISONE
  12. FOLIC ACID. [Concomitant]
     Active Substance: FOLIC ACID
  13. NEURONTIN [Concomitant]
     Active Substance: GABAPENTIN

REACTIONS (2)
  - Injection site swelling [Unknown]
  - Injection site erythema [Unknown]

NARRATIVE: CASE EVENT DATE: 20181207
